FAERS Safety Report 7867769-5 (Version None)
Quarter: 2011Q4

REPORT INFORMATION
  Report Type: 
  Country: None (occurrence: None)
  Receive Date: 20111028
  Receipt Date: 20111019
  Transmission Date: 20120403
  Serious: Yes (Hospitalization)
  Sender: FDA-Public Use
  Company Number: JP-ASTRAZENECA-2009SE18657

PATIENT
  Age: 77 Year
  Sex: Female

DRUGS (1)
  1. IRESSA [Suspect]
     Indication: LUNG NEOPLASM MALIGNANT
     Route: 048

REACTIONS (3)
  - CYSTITIS HAEMORRHAGIC [None]
  - INFECTIVE SPONDYLITIS [None]
  - INFECTIOUS PLEURAL EFFUSION [None]
